FAERS Safety Report 4766642-9 (Version None)
Quarter: 2005Q3

REPORT INFORMATION
  Report Type: 
  Country: None (occurrence: None)
  Receive Date: 20050912
  Receipt Date: 20050824
  Transmission Date: 20060218
  Serious: Yes (Death, Hospitalization)
  Sender: FDA-Public Use
  Company Number: A-US2005-10506

PATIENT
  Age: 37 Year
  Sex: Female
  Weight: 58 kg

DRUGS (8)
  1. TRACLEER [Suspect]
     Indication: PULMONARY HYPERTENSION
     Dosage: SEE IMAGE
     Route: 048
     Dates: start: 20020901, end: 20021009
  2. TRACLEER [Suspect]
     Indication: PULMONARY HYPERTENSION
     Dosage: SEE IMAGE
     Route: 048
     Dates: start: 20021010, end: 20050806
  3. TREPOSTINIL [Suspect]
     Dosage: 7.3 NG/KG, PER MIN
     Dates: start: 20050801, end: 20050813
  4. EPOPROSTENOL (EPOPROSTENOL) [Concomitant]
  5. OXYCODONE HCL [Concomitant]
  6. HEPARIN [Concomitant]
  7. PANTOPRAZOLE (PANTAPRAZOLE) [Concomitant]
  8. METHOTREXATE [Concomitant]

REACTIONS (18)
  - AGONAL DEATH STRUGGLE [None]
  - BLOOD PRESSURE DIASTOLIC INCREASED [None]
  - CARDIO-RESPIRATORY ARREST [None]
  - CONDITION AGGRAVATED [None]
  - CYANOSIS [None]
  - DYSPNOEA [None]
  - ELECTROMECHANICAL DISSOCIATION [None]
  - HEART RATE INCREASED [None]
  - HEPATIC CONGESTION [None]
  - HEPATIC FAILURE [None]
  - HEPATITIS ACUTE [None]
  - HYPONATRAEMIA [None]
  - INTERNATIONAL NORMALISED RATIO INCREASED [None]
  - PORTAL VEIN THROMBOSIS [None]
  - PULMONARY HYPERTENSION [None]
  - RENAL FAILURE ACUTE [None]
  - RESPIRATORY FAILURE [None]
  - RIGHT VENTRICULAR FAILURE [None]
